FAERS Safety Report 8856668 (Version 1)
Quarter: 2012Q4

REPORT INFORMATION
  Report Type: Spontaneous
  Country: US (occurrence: None)
  Receive Date: 20121024
  Receipt Date: 20121024
  Transmission Date: 20130627
  Serious: No
  Sender: FDA-Public Use
  Company Number: None

PATIENT
  Age: 57 Year
  Sex: Male
  Weight: 79.38 kg

DRUGS (2)
  1. METHYLPREDNISOLONE [Suspect]
     Indication: HERNIATED DISC
     Dates: start: 20110907, end: 20111207
  2. METHYLPREDNISOLONE [Suspect]
     Indication: CHRONIC PAIN
     Dates: start: 20110907, end: 20111207

REACTIONS (5)
  - Pain [None]
  - Musculoskeletal stiffness [None]
  - Headache [None]
  - Photosensitivity reaction [None]
  - Arthralgia [None]
